FAERS Safety Report 10066411 (Version 2)
Quarter: 2014Q2

REPORT INFORMATION
  Report Type: Spontaneous
  Country: JP (occurrence: JP)
  Receive Date: 20140408
  Receipt Date: 20140408
  Transmission Date: 20141212
  Serious: Yes (Death, Hospitalization)
  Sender: FDA-Public Use
  Company Number: JP-BAYER-2013-098711

PATIENT
  Age: 38 Year
  Sex: Female
  Weight: 82 kg

DRUGS (10)
  1. STIVARGA [Suspect]
     Indication: COLORECTAL CANCER
     Dosage: 160 MG, QD
     Route: 048
     Dates: start: 20130807, end: 20130820
  2. ONEALFA [Concomitant]
     Dosage: DAILY DOSE .25 MG
     Route: 048
  3. ASPARA-CA [Concomitant]
     Dosage: DAILY DOSE 600 MG
     Route: 048
  4. MEXITIL [Concomitant]
     Dosage: DAILY DOSE 300 MG
     Route: 048
  5. MAGLAX [Concomitant]
     Dosage: DAILY DOSE 1500 MG
     Route: 048
  6. NAIXAN [Concomitant]
     Dosage: DAILY DOSE 300 MG
     Route: 048
  7. NEXIUM [Concomitant]
     Dosage: DAILY DOSE 20 MG
     Route: 048
  8. PURSENNID [Concomitant]
     Dosage: DAILY DOSE 24 MG
     Route: 048
  9. MINOMYCIN [Concomitant]
     Dosage: DAILY DOSE 200 MG
     Route: 048
  10. DENOSUMAB [Concomitant]
     Indication: METASTASES TO BONE

REACTIONS (8)
  - Stomatitis [None]
  - Dysphonia [None]
  - Rash [Recovering/Resolving]
  - Platelet count decreased [Recovering/Resolving]
  - Multi-organ failure [Fatal]
  - Palmar-plantar erythrodysaesthesia syndrome [None]
  - Malaise [None]
  - Blood bilirubin increased [None]
